FAERS Safety Report 21701229 (Version 1)
Quarter: 2022Q4

REPORT INFORMATION
  Report Type: Spontaneous
  Country: US (occurrence: None)
  Receive Date: 20221208
  Receipt Date: 20221208
  Transmission Date: 20230112
  Serious: Yes (Life-Threatening, Hospitalization)
  Sender: FDA-Public Use
  Company Number: None

PATIENT
  Age: 67 Year
  Sex: Female
  Weight: 60.5 kg

DRUGS (4)
  1. CETUXIMAB [Suspect]
     Active Substance: CETUXIMAB
     Indication: Colon cancer
     Dosage: FREQUENCY : ONCE;?
     Route: 042
     Dates: start: 20221201, end: 20221201
  2. FOSAPREPITANT [Concomitant]
     Active Substance: FOSAPREPITANT
     Dates: start: 20221201
  3. diphenhydramine 25 mg [Concomitant]
     Dates: start: 20221201
  4. LORAZEPAM [Concomitant]
     Active Substance: LORAZEPAM
     Dates: start: 20221201

REACTIONS (6)
  - Anaphylactic reaction [None]
  - Urticaria [None]
  - Throat irritation [None]
  - Nausea [None]
  - Hypotension [None]
  - Acute myocardial infarction [None]

NARRATIVE: CASE EVENT DATE: 20221201
